FAERS Safety Report 20353283 (Version 3)
Quarter: 2022Q1

REPORT INFORMATION
  Report Type: Report from Study
  Country: JP (occurrence: JP)
  Receive Date: 20220119
  Receipt Date: 20220201
  Transmission Date: 20220423
  Serious: Yes (Hospitalization)
  Sender: FDA-Public Use
  Company Number: JP-JNJFOC-20220123143

PATIENT
  Age: 54 Year
  Sex: Female
  Weight: 63.4 kg

DRUGS (20)
  1. AMIVANTAMAB [Suspect]
     Active Substance: AMIVANTAMAB
     Indication: Non-small cell lung cancer
     Route: 042
     Dates: start: 20211111, end: 20211223
  2. MYSER [DIFLUPREDNATE] [Concomitant]
     Indication: Rash
     Dosage: DRUG STRUCTURE DOSAGE NUMBER: 1 UNSPECIFIED UNIT
     Route: 061
     Dates: start: 20211113, end: 20220105
  3. MYSER [DIFLUPREDNATE] [Concomitant]
     Dosage: DRUG STRUCTURE DOSAGE NUMBER: 1 UNSPECIFIED UNIT
     Route: 061
     Dates: start: 20220106, end: 20220116
  4. MYSER [DIFLUPREDNATE] [Concomitant]
     Dosage: DOSE 1 UNITS NOT PROVIDED
     Route: 061
     Dates: start: 20220117
  5. MINOCYCLINE HYDROCHLORIDE [Concomitant]
     Active Substance: MINOCYCLINE HYDROCHLORIDE
     Indication: Rash
     Route: 048
     Dates: start: 20211113, end: 20220105
  6. MINOCYCLINE HYDROCHLORIDE [Concomitant]
     Active Substance: MINOCYCLINE HYDROCHLORIDE
     Route: 048
     Dates: start: 20220106, end: 20220116
  7. MINOCYCLINE HYDROCHLORIDE [Concomitant]
     Active Substance: MINOCYCLINE HYDROCHLORIDE
     Route: 048
     Dates: start: 20220117
  8. PREDNISOLONE VALERATE ACETATE [Concomitant]
     Active Substance: PREDNISOLONE VALERATE ACETATE
     Indication: Rash
     Dosage: DRUG STRUCTURE DOSAGE NUMBER: 1 UNSPECIFIED UNIT
     Route: 061
     Dates: start: 20211113, end: 20220105
  9. GLYCOSAMINOGLYCANS [Concomitant]
     Active Substance: GLYCOSAMINOGLYCANS
     Indication: Rash
     Dosage: DRUG STRUCTURE DOSAGE NUMBER: 1 UNSPECIFIED UNIT
     Route: 061
     Dates: start: 20211113, end: 20220105
  10. BILASTINE [Concomitant]
     Active Substance: BILASTINE
     Indication: Rash
     Route: 048
     Dates: start: 20211118, end: 20220106
  11. BILASTINE [Concomitant]
     Active Substance: BILASTINE
     Route: 048
     Dates: start: 20220106, end: 20220116
  12. BILASTINE [Concomitant]
     Active Substance: BILASTINE
     Route: 048
     Dates: start: 20220117
  13. ALCLOMETASONE DIPROPIONATE [Concomitant]
     Active Substance: ALCLOMETASONE DIPROPIONATE
     Indication: Rash
     Dosage: DRUG STRUCTURE DOSAGE NUMBER: 1 UNSPECIFIED UNIT
     Route: 061
     Dates: start: 20211223, end: 20220105
  14. ALCLOMETASONE DIPROPIONATE [Concomitant]
     Active Substance: ALCLOMETASONE DIPROPIONATE
     Dosage: DRUG STRUCTURE DOSAGE NUMBER: 1 UNSPECIFIED UNIT
     Route: 061
     Dates: start: 20220106, end: 20220116
  15. ALCLOMETASONE DIPROPIONATE [Concomitant]
     Active Substance: ALCLOMETASONE DIPROPIONATE
     Dosage: DOSE 1 UNITS NOT PROVIDED
     Route: 061
     Dates: start: 20220117
  16. FLURANDRENOLIDE [Concomitant]
     Active Substance: FLURANDRENOLIDE
     Indication: Rash
     Route: 062
     Dates: start: 20220106
  17. FLURANDRENOLIDE [Concomitant]
     Active Substance: FLURANDRENOLIDE
     Route: 062
     Dates: start: 20220117
  18. GENTAMICIN SULFATE [Concomitant]
     Active Substance: GENTAMICIN SULFATE
     Indication: Paronychia
     Dosage: DRUG STRUCTURE DOSAGE NUMBER: 1 UNSPECIFIED UNIT
     Route: 061
     Dates: start: 20220106
  19. MIYA-BM [Concomitant]
     Active Substance: CLOSTRIDIUM BUTYRICUM SPORES STRAIN M-55
     Indication: Abdominal distension
     Route: 048
     Dates: start: 20220106
  20. DUPHASTON [Concomitant]
     Active Substance: DYDROGESTERONE
     Indication: Menopausal symptoms
     Dosage: FREQ: OTHER
     Route: 048
     Dates: start: 20160101, end: 20220113

REACTIONS (1)
  - Deep vein thrombosis [Recovering/Resolving]

NARRATIVE: CASE EVENT DATE: 20220110
